FAERS Safety Report 11311334 (Version 1)
Quarter: 2015Q3

REPORT INFORMATION
  Report Type: Spontaneous
  Country: FR (occurrence: None)
  Receive Date: 20150723
  Receipt Date: 20150723
  Transmission Date: 20151125
  Serious: Yes (Hospitalization)
  Sender: FDA-Public Use
  Company Number: CO-UX-FR-2015-017

PATIENT
  Age: 64 Year
  Sex: Male

DRUGS (6)
  1. CITALOPRAM [Suspect]
     Active Substance: CITALOPRAM HYDROBROMIDE
     Route: 048
     Dates: end: 20150618
  2. XATRAL (10 MILLIGRAM, SUSTAINED-RELEASE TABLET) (ALFUZOSIN HYDROCHLORIDE) [Suspect]
     Active Substance: ALFUZOSIN HYDROCHLORIDE
     Route: 048
  3. TEMESTA (5 MILLIGRAM, TABLET) (LORAZEPAM) [Suspect]
     Active Substance: LORAZEPAM
     Indication: PSYCHOTIC DISORDER
     Route: 048
     Dates: start: 201411
  4. DEPAMIDE (300 MILLIGRAM, GASTRO-RESISTANT TABLET) (VALPROMIDE) [Suspect]
     Active Substance: VALPROMIDE
     Dosage: 1500 MG, 5 IN 1 D, ORAL
     Route: 048
     Dates: start: 201411
  5. LEPTICUR (10 MILLIGRAM, TABLET) (TROPATEPINE HYDROCHLORIDE) [Suspect]
     Active Substance: TROPATEPINE HYDROCHLORIDE
     Route: 048
  6. XEROQUEL (600 MILLIGRAM, SUSTAINED-RELEASE TABLET) (QUETIAPINE FUMARATE) [Suspect]
     Active Substance: QUETIAPINE FUMARATE
     Indication: SCHIZOPHRENIA
     Route: 048

REACTIONS (1)
  - Hyponatraemia [None]

NARRATIVE: CASE EVENT DATE: 20150618
